FAERS Safety Report 18861846 (Version 1)
Quarter: 2021Q1

REPORT INFORMATION
  Report Type: Report from Study
  Country: US (occurrence: US)
  Receive Date: 20210209
  Receipt Date: 20210209
  Transmission Date: 20210420
  Serious: Yes (Other)
  Sender: FDA-Public Use
  Company Number: US-BEH-2021127842

PATIENT
  Age: 77 Year
  Sex: Female

DRUGS (2)
  1. PROLIA [Suspect]
     Active Substance: DENOSUMAB
     Route: 065
  2. HAEGARDA [Suspect]
     Active Substance: HUMAN C1-ESTERASE INHIBITOR
     Dosage: UNK, BIW
     Route: 065

REACTIONS (5)
  - Injection site pruritus [Unknown]
  - Swelling [Unknown]
  - Pain in jaw [Unknown]
  - Injection site swelling [Unknown]
  - Pruritus [Unknown]

NARRATIVE: CASE EVENT DATE: 202002
